FAERS Safety Report 4615400-4 (Version None)
Quarter: 2005Q1

REPORT INFORMATION
  Report Type: 
  Country: None (occurrence: None)
  Receive Date: 20050317
  Receipt Date: 20050301
  Transmission Date: 20050727
  Serious: Yes (Hospitalization, Other)
  Sender: FDA-Public Use
  Company Number: SP00395

PATIENT
  Age: 55 Year
  Sex: Female

DRUGS (1)
  1. XIFAXAN [Suspect]
     Dosage: 200MG/BID, ORAL
     Route: 048
     Dates: start: 20500125, end: 20050129

REACTIONS (1)
  - ANAPHYLACTIC SHOCK [None]
